FAERS Safety Report 23837413 (Version 1)
Quarter: 2024Q2

REPORT INFORMATION
  Report Type: Spontaneous
  Country: CN (occurrence: CN)
  Receive Date: 20240509
  Receipt Date: 20240509
  Transmission Date: 20240716
  Serious: Yes (Hospitalization, Other)
  Sender: FDA-Public Use
  Company Number: CN-AMGEN-CHNSP2024089796

PATIENT
  Age: 67 Year
  Sex: Female
  Weight: 57.8 kg

DRUGS (1)
  1. KYPROLIS [Suspect]
     Active Substance: CARFILZOMIB
     Indication: Plasma cell myeloma
     Dosage: 30 MILLIGRAM, QD
     Route: 042
     Dates: start: 20240329, end: 20240330

REACTIONS (1)
  - Peripheral paralysis [Recovering/Resolving]

NARRATIVE: CASE EVENT DATE: 20240417
